FAERS Safety Report 9898534 (Version 1)
Quarter: 2014Q1

REPORT INFORMATION
  Report Type: Spontaneous
  Country: RU (occurrence: RU)
  Receive Date: 20140214
  Receipt Date: 20140214
  Transmission Date: 20141002
  Serious: Yes (Other)
  Sender: FDA-Public Use
  Company Number: RU-BAYER-2014-019406

PATIENT
  Age: 61 Year
  Sex: Female

DRUGS (4)
  1. ASPIRIN CARDIO [Suspect]
     Dosage: UNK
     Dates: start: 201311
  2. ARIFON [Concomitant]
  3. ATENOLOL [Concomitant]
  4. SIOFOR [Concomitant]
     Indication: PROPHYLAXIS

REACTIONS (2)
  - Blood glucose increased [Recovered/Resolved]
  - Blood glucose increased [Recovered/Resolved]
